FAERS Safety Report 13681692 (Version 1)
Quarter: 2017Q2

REPORT INFORMATION
  Report Type: Spontaneous
  Country: US (occurrence: US)
  Receive Date: 20170622
  Receipt Date: 20170622
  Transmission Date: 20170830
  Serious: Yes (Other)
  Sender: FDA-Public Use
  Company Number: None

PATIENT
  Age: 45 Year
  Sex: Female
  Weight: 101.2 kg

DRUGS (12)
  1. MAXALT [Concomitant]
     Active Substance: RIZATRIPTAN BENZOATE
  2. KEPPRA [Concomitant]
     Active Substance: LEVETIRACETAM
  3. LORAZEPAM. [Concomitant]
     Active Substance: LORAZEPAM
  4. GABAPENTIN. [Concomitant]
     Active Substance: GABAPENTIN
  5. LAMICTAL [Concomitant]
     Active Substance: LAMOTRIGINE
  6. XARELTO [Suspect]
     Active Substance: RIVAROXABAN
     Indication: THROMBOSIS
     Dosage: ?          QUANTITY:1 TABLET(S);?
     Route: 048
     Dates: start: 20160815, end: 20170611
  7. PROPRANOLOL [Concomitant]
     Active Substance: PROPRANOLOL HYDROCHLORIDE
  8. IRON [Concomitant]
     Active Substance: IRON
  9. ABILIFY [Concomitant]
     Active Substance: ARIPIPRAZOLE
  10. METHERGINE [Concomitant]
     Active Substance: METHYLERGONOVINE MALEATE
  11. LIPITOR [Concomitant]
     Active Substance: ATORVASTATIN CALCIUM
  12. FLONASE [Concomitant]
     Active Substance: FLUTICASONE PROPIONATE

REACTIONS (2)
  - Product substitution issue [None]
  - Deep vein thrombosis [None]

NARRATIVE: CASE EVENT DATE: 20170612
